FAERS Safety Report 7180042-6 (Version None)
Quarter: 2010Q4

REPORT INFORMATION
  Report Type: 
  Country: None (occurrence: None)
  Receive Date: 20101123
  Receipt Date: 20100804
  Transmission Date: 20110411
  Serious: No
  Sender: FDA-Public Use
  Company Number: 016795

PATIENT
  Sex: Female
  Weight: 53.5 kg

DRUGS (7)
  1. CIMZIA [Suspect]
     Indication: CROHN'S DISEASE
     Dosage: (400 MG 1X/4 WEEKS SUBCUTANEOUS)
     Route: 058
     Dates: start: 20100520
  2. CIPRO [Concomitant]
  3. SYNTHROID [Concomitant]
  4. CALCIUM PLUS /01483701/ [Concomitant]
  5. VITAMIN A [Concomitant]
  6. IMODIUM /00384302/ [Concomitant]
  7. VITAMIN B12 /00056201/ [Concomitant]

REACTIONS (2)
  - EYE INFLAMMATION [None]
  - OCULAR HYPERAEMIA [None]
